FAERS Safety Report 6366602-0 (Version None)
Quarter: 2009Q3

REPORT INFORMATION
  Report Type: 
  Country: None (occurrence: None)
  Receive Date: 20090921
  Receipt Date: 20090911
  Transmission Date: 20100115
  Serious: Yes (Other)
  Sender: FDA-Public Use
  Company Number: JP-ASTRAZENECA-2009SE02183

PATIENT
  Age: 46 Year
  Sex: Female

DRUGS (4)
  1. CRESTOR [Suspect]
     Indication: HYPERCHOLESTEROLAEMIA
     Route: 048
     Dates: start: 20081225, end: 20090430
  2. CRESTOR [Suspect]
     Route: 048
     Dates: start: 20090508, end: 20090528
  3. CRESTOR [Suspect]
     Route: 048
     Dates: start: 20090615
  4. AMARYL [Concomitant]
     Indication: DIABETES MELLITUS
     Route: 048
     Dates: start: 20081212

REACTIONS (1)
  - MASTITIS [None]
